FAERS Safety Report 5733394-5 (Version None)
Quarter: 2008Q2

REPORT INFORMATION
  Report Type: 
  Country: None (occurrence: None)
  Receive Date: 20080509
  Receipt Date: 20080428
  Transmission Date: 20081010
  Serious: Yes (Death, Other)
  Sender: FDA-Public Use
  Company Number: BR-ROCHE-559043

PATIENT
  Age: 34 Year
  Sex: Male
  Weight: 117 kg

DRUGS (3)
  1. CLONAZEPAM [Suspect]
     Indication: NERVOUSNESS
     Route: 048
     Dates: start: 20080414, end: 20080414
  2. CLONAZEPAM [Suspect]
     Route: 048
     Dates: start: 20040101
  3. FLUOXETINE [Concomitant]

REACTIONS (8)
  - ASTHENIA [None]
  - CONFUSIONAL STATE [None]
  - DEATH [None]
  - DEPRESSION [None]
  - DIZZINESS [None]
  - OVERDOSE [None]
  - SUICIDAL IDEATION [None]
  - THYROID DISORDER [None]
